FAERS Safety Report 4491390-2 (Version None)
Quarter: 2004Q4

REPORT INFORMATION
  Report Type: 
  Country: None (occurrence: None)
  Receive Date: 20041101
  Receipt Date: 20041101
  Transmission Date: 20050328
  Serious: No
  Sender: FDA-Public Use
  Company Number: None

PATIENT
  Age: 37 Year
  Sex: Female

DRUGS (1)
  1. PHENYTOIN [Suspect]
     Indication: CONVULSION
     Dosage: 100 MG PO 2 BID
     Route: 048

REACTIONS (2)
  - DRUG TOXICITY [None]
  - PHARMACEUTICAL PRODUCT COMPLAINT [None]
